FAERS Safety Report 11696071 (Version 1)
Quarter: 2015Q4

REPORT INFORMATION
  Report Type: Spontaneous
  Country: US (occurrence: None)
  Receive Date: 20151103
  Receipt Date: 20151103
  Transmission Date: 20160304
  Serious: No
  Sender: FDA-Public Use
  Company Number: None

PATIENT
  Age: 49 Year
  Sex: Male
  Weight: 93.44 kg

DRUGS (4)
  1. ZOLOFT [Concomitant]
     Active Substance: SERTRALINE HYDROCHLORIDE
  2. SEROQUEL [Concomitant]
     Active Substance: QUETIAPINE FUMARATE
  3. DEXTROSTAT [Suspect]
     Active Substance: DEXTROAMPHETAMINE SULFATE
     Indication: DEPRESSIVE SYMPTOM
     Dosage: 1 PILL
     Route: 048
     Dates: start: 20150401, end: 20151102
  4. TAPAZOLE [Concomitant]
     Active Substance: METHIMAZOLE

REACTIONS (7)
  - Adverse drug reaction [None]
  - Product substitution issue [None]
  - Drug effect decreased [None]
  - Agitation [None]
  - Hyperhidrosis [None]
  - Hyperacusis [None]
  - Drug withdrawal syndrome [None]

NARRATIVE: CASE EVENT DATE: 20151102
